FAERS Safety Report 7721287-3 (Version None)
Quarter: 2011Q3

REPORT INFORMATION
  Report Type: 
  Country: None (occurrence: None)
  Receive Date: 20110831
  Receipt Date: 20110825
  Transmission Date: 20111222
  Serious: Yes (Other)
  Sender: FDA-Public Use
  Company Number: PHHY2010CA24345

PATIENT
  Sex: Female

DRUGS (4)
  1. SANDOSTATIN LAR [Suspect]
     Indication: SMALL INTESTINE CARCINOMA
     Dosage: 10 MG, QMO
     Route: 030
     Dates: start: 20100412
  2. SANDOSTATIN LAR [Suspect]
     Dosage: 5 MG, QMO
     Route: 030
  3. SANDOSTATIN LAR [Suspect]
     Dosage: 10 MG, QMO
     Route: 030
     Dates: start: 20100705
  4. SANDOSTATIN LAR [Suspect]
     Dosage: 5 MG, EVERY FOUR WEEKS
     Route: 030

REACTIONS (12)
  - INJECTION SITE PAIN [None]
  - DIARRHOEA [None]
  - VOMITING [None]
  - BLOOD PRESSURE SYSTOLIC INCREASED [None]
  - COUGH [None]
  - NAUSEA [None]
  - INJURY [None]
  - PYREXIA [None]
  - CHILLS [None]
  - HAEMOPTYSIS [None]
  - ABDOMINAL PAIN [None]
  - INJECTION SITE ERYTHEMA [None]
